FAERS Safety Report 7629538-0 (Version None)
Quarter: 2011Q3

REPORT INFORMATION
  Report Type: 
  Country: None (occurrence: None)
  Receive Date: 20110722
  Receipt Date: 20110427
  Transmission Date: 20111222
  Serious: No
  Sender: FDA-Public Use
  Company Number: US-BAYER-2011-037300

PATIENT
  Age: 36 Year
  Sex: Male
  Weight: 77.098 kg

DRUGS (2)
  1. NEURONTIN [Concomitant]
     Dosage: 100 MG, UNK
  2. BETASERON [Suspect]
     Dosage: 0.25 ML, QOD
     Route: 058

REACTIONS (4)
  - HEADACHE [None]
  - RASH MACULAR [None]
  - ANXIETY [None]
  - PRURITUS GENERALISED [None]
